FAERS Safety Report 7412050 (Version 4)
Quarter: 2012Q4

REPORT INFORMATION
  Report Type: Report from Study
  Country: ES (occurrence: ES)
  Receive Date: 20100607
  Receipt Date: 20121108
  Transmission Date: 20130627
  Serious: Yes (Hospitalization)
  Sender: FDA-Public Use
  Company Number: PHHO2010ES07143

PATIENT
  Age: 74 Year
  Sex: Male

DRUGS (6)
  1. EVEROLIMUS [Suspect]
     Dosage: 10 mg, UNK
     Route: 048
     Dates: start: 20100216, end: 20100427
  2. ACETYLSALICYLIC ACID [Concomitant]
     Indication: CARDIOVASCULAR EVENT PROPHYLAXIS
  3. CLOPIDOGREL [Concomitant]
     Indication: CARDIAC FAILURE CONGESTIVE
     Dosage: UNK
  4. DILTIAZEM [Concomitant]
     Indication: CARDIAC FAILURE CONGESTIVE
  5. DIGOXINE [Concomitant]
     Dosage: UNK
  6. VERAPAMIL [Concomitant]

REACTIONS (11)
  - Pneumonitis [Recovered/Resolved]
  - Dyspnoea [Recovered/Resolved]
  - Cough [Recovered/Resolved]
  - Pleural effusion [Recovered/Resolved]
  - Lung infiltration [Recovered/Resolved]
  - Fatigue [Recovered/Resolved]
  - Oedema peripheral [Recovered/Resolved]
  - Arrhythmia [Recovered/Resolved]
  - Palpitations [Recovered/Resolved]
  - Atrial fibrillation [Unknown]
  - Cardiomegaly [Recovered/Resolved]
